FAERS Safety Report 4768374-X (Version None)
Quarter: 2005Q3

REPORT INFORMATION
  Report Type: 
  Country: None (occurrence: None)
  Receive Date: 20050906
  Receipt Date: 20050607
  Transmission Date: 20060218
  Serious: No
  Sender: FDA-Public Use
  Company Number: 2005-BP-00184BP

PATIENT
  Sex: Female

DRUGS (4)
  1. SPIRIVA [Suspect]
     Dosage: 18 MCG (18 MCG), IH
     Route: 055
     Dates: start: 20040101
  2. SPIRIVA [Suspect]
  3. SPIRIVA [Suspect]
  4. SPIRIVA [Suspect]

REACTIONS (1)
  - DRUG INEFFECTIVE [None]
